FAERS Safety Report 4981301-5 (Version None)
Quarter: 2006Q2

REPORT INFORMATION
  Report Type: 
  Country: None (occurrence: None)
  Receive Date: 20060424
  Receipt Date: 20050201
  Transmission Date: 20061013
  Serious: Yes (Hospitalization)
  Sender: FDA-Public Use
  Company Number: US-MERCK-0502USA00225

PATIENT
  Age: 77 Year
  Sex: Female
  Weight: 86 kg

DRUGS (3)
  1. VIOXX [Suspect]
     Indication: ARTHRALGIA
     Route: 048
     Dates: start: 20010101, end: 20040801
  2. ASPIRIN [Concomitant]
     Route: 065
  3. GLUCOSAMINE [Concomitant]
     Route: 065

REACTIONS (12)
  - ACUTE MYOCARDIAL INFARCTION [None]
  - ANGINA UNSTABLE [None]
  - ARTERIAL OCCLUSIVE DISEASE [None]
  - BUNDLE BRANCH BLOCK LEFT [None]
  - CHEST PAIN [None]
  - DRUG INTOLERANCE [None]
  - HAEMOTHORAX [None]
  - HYPOTHYROIDISM [None]
  - INJURY [None]
  - POST PROCEDURAL PULMONARY EMBOLISM [None]
  - PULMONARY EMBOLISM [None]
  - SINUS BRADYCARDIA [None]
